FAERS Safety Report 21963288 (Version 1)
Quarter: 2023Q1

REPORT INFORMATION
  Report Type: Spontaneous
  Country: CN (occurrence: CN)
  Receive Date: 20230207
  Receipt Date: 20230207
  Transmission Date: 20230418
  Serious: Yes (Other)
  Sender: FDA-Public Use
  Company Number: CN-PFIZER INC-PV202300022194

PATIENT
  Age: 64 Year
  Sex: Male

DRUGS (1)
  1. NIRMATRELVIR\RITONAVIR [Suspect]
     Active Substance: NIRMATRELVIR\RITONAVIR
     Indication: Antiviral treatment
     Dosage: 2 DF, 2X/DAY (2 TABLETS OF NIRMATRELVIR TABLETS/RITONAVIR TABLETS ORAL Q12H)
     Route: 048
     Dates: start: 20230105, end: 20230108

REACTIONS (2)
  - Abdominal pain [Recovering/Resolving]
  - Incorrect dose administered [Unknown]

NARRATIVE: CASE EVENT DATE: 20230105
